FAERS Safety Report 5331149-7 (Version None)
Quarter: 2007Q2

REPORT INFORMATION
  Report Type: 
  Country: None (occurrence: None)
  Receive Date: 20070522
  Receipt Date: 20070510
  Transmission Date: 20071010
  Serious: Yes (Other)
  Sender: FDA-Public Use
  Company Number: US-JNJFOC-20070502873

PATIENT
  Sex: Female
  Weight: 61.24 kg

DRUGS (5)
  1. FENTANYL TRANSDERMAL SYSTEM [Suspect]
     Indication: PAIN
     Route: 062
  2. LEVOXYL [Concomitant]
     Route: 048
  3. NEURONTIN [Concomitant]
     Indication: NEURALGIA
     Route: 048
  4. PREMARIN [Concomitant]
     Indication: HORMONE REPLACEMENT THERAPY
     Route: 048
  5. MOTRIN [Concomitant]
     Indication: PAIN
     Route: 048

REACTIONS (8)
  - ANXIETY [None]
  - CONFUSIONAL STATE [None]
  - DEPRESSION [None]
  - DRUG DOSE OMISSION [None]
  - DRUG INEFFECTIVE [None]
  - EATING DISORDER [None]
  - FEELING ABNORMAL [None]
  - PYREXIA [None]
